FAERS Safety Report 9155075 (Version 3)
Quarter: 2013Q2

REPORT INFORMATION
  Report Type: Spontaneous
  Country: US (occurrence: US)
  Receive Date: 20130311
  Receipt Date: 20130614
  Transmission Date: 20140414
  Serious: No
  Sender: FDA-Public Use
  Company Number: US-009507513-1303USA002146

PATIENT
  Age: 39 Year
  Sex: Female

DRUGS (2)
  1. PROVENTIL [Suspect]
     Indication: ASTHMA
     Dosage: UNK
     Route: 055
  2. ZANTAC [Concomitant]

REACTIONS (3)
  - Pneumonia [Recovering/Resolving]
  - Drug ineffective [Unknown]
  - Product quality issue [Unknown]
